FAERS Safety Report 9345528 (Version 1)
Quarter: 2013Q2

REPORT INFORMATION
  Report Type: Report from Study
  Country: UA (occurrence: UA)
  Receive Date: 20130613
  Receipt Date: 20130613
  Transmission Date: 20140414
  Serious: Yes (Hospitalization, Other)
  Sender: FDA-Public Use
  Company Number: UA-TEVA-306061ISR

PATIENT
  Age: 49 Year
  Sex: Female
  Weight: 58.6 kg

DRUGS (28)
  1. TL011 [Suspect]
     Indication: DIFFUSE LARGE B-CELL LYMPHOMA
     Dosage: DOUBLE BLIND: TL011  IV VS. MABTHERA
     Route: 042
     Dates: start: 20110809
  2. MABTHERA [Suspect]
     Indication: DIFFUSE LARGE B-CELL LYMPHOMA
     Dosage: DOUBLE BLIND: TL011 VS. MABTHERA
     Route: 042
     Dates: start: 20110809
  3. DOXORUBICIN [Suspect]
     Indication: CHEMOTHERAPY
     Dosage: 82 MILLIGRAM DAILY;
     Route: 042
     Dates: start: 20111011, end: 20111011
  4. DOXORUBICIN [Suspect]
     Dosage: 83 MILLIGRAM DAILY;
     Route: 042
     Dates: start: 20110919, end: 20110919
  5. VINCRISTINE [Suspect]
     Indication: CHEMOTHERAPY
     Dosage: 2 MILLIGRAM DAILY;
     Route: 042
     Dates: start: 20111011, end: 20111011
  6. VINCRISTINE [Suspect]
     Dosage: 2 MILLIGRAM DAILY;
     Route: 042
     Dates: start: 20110919, end: 20110919
  7. CYCLOPHOSPHAMID [Suspect]
     Indication: CHEMOTHERAPY
     Dosage: 1229 MILLIGRAM DAILY;
     Route: 042
     Dates: start: 20111011, end: 20111011
  8. CYCLOPHOSPHAMID [Suspect]
     Dosage: 1244 MILLIGRAM DAILY;
     Route: 042
     Dates: start: 20110919, end: 20110919
  9. DIPHENHYDRAMINE [Concomitant]
     Indication: PREMEDICATION
     Dosage: 1 ML DAILY;
     Route: 042
     Dates: start: 20111011, end: 20111011
  10. PREDNISOLONE [Concomitant]
     Indication: PREMEDICATION
     Dosage: 66 MILLIGRAM DAILY;
     Route: 042
     Dates: start: 20111011, end: 20111011
  11. PREDNISOLONE [Concomitant]
     Dosage: 65 MILLIGRAM DAILY;
     Route: 048
     Dates: start: 20111012, end: 20111015
  12. PREDNISOLONE [Concomitant]
     Dosage: 66 MILLIGRAM DAILY;
     Route: 042
     Dates: start: 20110919, end: 20110919
  13. PREDNISOLONE [Concomitant]
     Dosage: 65 MILLIGRAM DAILY;
     Route: 048
     Dates: start: 20110920, end: 20110923
  14. ALLOPURINOL [Concomitant]
     Indication: PROPHYLAXIS
     Dosage: .3 GRAM DAILY;
     Route: 048
     Dates: start: 20110919, end: 20110923
  15. ALLOPURINOL [Concomitant]
     Dosage: .3 GRAM DAILY;
     Route: 048
     Dates: start: 20111011, end: 20111015
  16. POTASSIUM MAGNESIUM ASPARTATE [Concomitant]
     Indication: PROPHYLAXIS
     Route: 048
     Dates: start: 20110919, end: 20110923
  17. POTASSIUM MAGNESIUM ASPARTATE [Concomitant]
     Route: 048
     Dates: start: 20111011, end: 20111015
  18. OMEPRAZOLUM [Concomitant]
     Indication: PROPHYLAXIS
     Dosage: 40 MILLIGRAM DAILY;
     Route: 048
     Dates: start: 20110919, end: 20110923
  19. OMEPRAZOLUM [Concomitant]
     Indication: PROPHYLAXIS
     Dosage: 40 MILLIGRAM DAILY;
     Route: 048
     Dates: start: 20111011, end: 20111015
  20. ACICLOVIRUM [Concomitant]
     Indication: ANTIVIRAL PROPHYLAXIS
     Dosage: 800 MILLIGRAM DAILY;
     Route: 048
     Dates: start: 20110919
  21. CO-TRIMOXAZOL [Concomitant]
     Indication: PROPHYLAXIS
     Dosage: BID, THREE TIMES PER WEEK
     Route: 048
     Dates: start: 20110919, end: 20111020
  22. FERROUS SULFATE+ASCORBIC ACID [Concomitant]
     Indication: ANAEMIA
     Route: 048
     Dates: start: 20110919, end: 20111020
  23. THIOTRIAZOLINUM [Concomitant]
     Indication: PROPHYLAXIS
     Dosage: 4 ML DAILY; STRENGTH: 2.5%
     Route: 042
     Dates: start: 20111011, end: 20111015
  24. ENALAPRIL [Concomitant]
     Indication: PROPHYLAXIS
     Dosage: 5 MILLIGRAM DAILY;
     Route: 048
     Dates: start: 20111011, end: 20111015
  25. ONDANSETRON [Concomitant]
     Indication: PROPHYLAXIS
     Dosage: 8 MILLIGRAM DAILY;
     Route: 042
     Dates: start: 20111011, end: 20111011
  26. SODIUM CHLORIDE [Concomitant]
     Indication: DETOXIFICATION
     Dosage: 420 ML DAILY; STRENGTH: 0.9%
     Route: 042
     Dates: start: 20111011, end: 20111011
  27. DIAZEPAM [Concomitant]
     Indication: SEDATION
     Dosage: 2 MILLIGRAM DAILY; STRENGTH: 0.5%
     Route: 042
     Dates: start: 20111011, end: 20111011
  28. METOCLOPRAMIDE [Concomitant]
     Indication: NAUSEA
     Dosage: 10 MILLIGRAM DAILY;
     Route: 048
     Dates: start: 20111012, end: 20111016

REACTIONS (3)
  - Febrile neutropenia [Recovered/Resolved]
  - Pericoronitis [Recovered/Resolved]
  - White blood cell count decreased [Recovered/Resolved]
